FAERS Safety Report 20945055 (Version 1)
Quarter: 2022Q2

REPORT INFORMATION
  Report Type: Report from Study
  Country: FR (occurrence: FR)
  Receive Date: 20220610
  Receipt Date: 20220610
  Transmission Date: 20220720
  Serious: Yes (Other)
  Sender: FDA-Public Use
  Company Number: FR-MYLANLABS-2022M1043961

PATIENT

DRUGS (3)
  1. TENOFOVIR DISOPROXIL [Suspect]
     Active Substance: TENOFOVIR DISOPROXIL
     Indication: HIV infection
     Dosage: 4 DAYS ON AND 3 DAYS OFF IN A WEEK INTERMITTENT TREATMENT
  2. EMTRICITABINE [Suspect]
     Active Substance: EMTRICITABINE
     Indication: HIV infection
     Dosage: 4 DAYS ON AND 3 DAYS OFF IN A WEEK INTERMITTENT TREATMENT
  3. RILPIVIRINE [Suspect]
     Active Substance: RILPIVIRINE
     Indication: HIV infection
     Dosage: 4 DAYS ON AND 3 DAY OFF IN A WEEK INTERMITTENT GROUP

REACTIONS (1)
  - Virologic failure [Unknown]
